FAERS Safety Report 12280445 (Version 2)
Quarter: 2016Q2

REPORT INFORMATION
  Report Type: Spontaneous
  Country: ES (occurrence: ES)
  Receive Date: 20160419
  Receipt Date: 20160421
  Transmission Date: 20160815
  Serious: Yes (Other)
  Sender: FDA-Public Use
  Company Number: ES-PFIZER INC-2016218317

PATIENT
  Age: 76 Year
  Sex: Male

DRUGS (8)
  1. OMEPRAZOLE. [Concomitant]
     Active Substance: OMEPRAZOLE
     Dosage: 20 MG/24 H
  2. BOSENTAN. [Concomitant]
     Active Substance: BOSENTAN
     Indication: PULMONARY HYPERTENSION
  3. ACETYLCYSTEINE. [Concomitant]
     Active Substance: ACETYLCYSTEINE
     Dosage: 600 MG/8 H
  4. PREDNISONE. [Concomitant]
     Active Substance: PREDNISONE
     Dosage: 30 MG/24 H
  5. MAGNESIA /00123201/ [Concomitant]
     Active Substance: MAGNESIUM HYDROXIDE
     Indication: LAXATIVE SUPPORTIVE CARE
  6. OXYGEN. [Concomitant]
     Active Substance: OXYGEN
     Dates: start: 201107
  7. ORAMORPH [Suspect]
     Active Substance: MORPHINE SULFATE
     Dosage: 2 MG/4 H PO, LOW-DOSE
     Route: 048
     Dates: start: 201301
  8. ORAMORPH [Suspect]
     Active Substance: MORPHINE SULFATE
     Dosage: 3 MG/4 H
     Route: 048

REACTIONS (4)
  - Condition aggravated [Unknown]
  - Abdominal pain [Unknown]
  - Faecaloma [Unknown]
  - Constipation [Not Recovered/Not Resolved]
